FAERS Safety Report 15179478 (Version 1)
Quarter: 2018Q3

REPORT INFORMATION
  Report Type: Spontaneous
  Country: US (occurrence: US)
  Receive Date: 20180723
  Receipt Date: 20180723
  Transmission Date: 20181010
  Serious: Yes (Other)
  Sender: FDA-Public Use
  Company Number: US-ASTELLAS-2018US032087

PATIENT
  Age: 63 Year
  Sex: Male

DRUGS (1)
  1. TACROLIMUS. [Suspect]
     Active Substance: TACROLIMUS
     Indication: LIVER TRANSPLANT
     Dosage: UNK UNK, UNKNOWN FREQ.
     Route: 065

REACTIONS (5)
  - Graft versus host disease in gastrointestinal tract [Unknown]
  - Stomatococcal infection [Recovering/Resolving]
  - Pneumonia [Recovering/Resolving]
  - Graft versus host disease in skin [Unknown]
  - Alveolitis allergic [Unknown]
